FAERS Safety Report 4337801-4 (Version None)
Quarter: 2004Q2

REPORT INFORMATION
  Report Type: 
  Country: None (occurrence: None)
  Receive Date: 20040413
  Receipt Date: 20040325
  Transmission Date: 20050107
  Serious: Yes (Death, Life-Threatening)
  Sender: FDA-Public Use
  Company Number: FR-BRISTOL-MYERS SQUIBB COMPANY-12550794

PATIENT
  Age: 69 Year
  Sex: Female

DRUGS (5)
  1. CYCLOPHOSPHAMIDE [Suspect]
     Indication: IDIOPATHIC THROMBOCYTOPENIC PURPURA
     Dates: start: 20030305, end: 20030429
  2. ELISOR [Suspect]
     Dates: start: 19990101
  3. TENORMIN [Suspect]
     Dates: start: 19970101
  4. ODRIK [Suspect]
     Dates: start: 19990101
  5. RITUXIMAB [Suspect]
     Dates: start: 20030506, end: 20030528

REACTIONS (2)
  - IDIOPATHIC THROMBOCYTOPENIC PURPURA [None]
  - THROMBOCYTOPENIA [None]
